FAERS Safety Report 18642841 (Version 1)
Quarter: 2020Q4

REPORT INFORMATION
  Report Type: Spontaneous
  Country: SE (occurrence: SE)
  Receive Date: 20201221
  Receipt Date: 20201221
  Transmission Date: 20210114
  Serious: Yes (Other)
  Sender: FDA-Public Use
  Company Number: SE-MYLANLABS-2020M1103071

PATIENT
  Age: 77 Year
  Sex: Female

DRUGS (2)
  1. CANDESARTAN KRKA [Suspect]
     Active Substance: CANDESARTAN
     Indication: PRODUCT USED FOR UNKNOWN INDICATION
     Dosage: UNK
  2. METOPROLOL. [Suspect]
     Active Substance: METOPROLOL
     Indication: PRODUCT USED FOR UNKNOWN INDICATION
     Dosage: FOR A LONG TIME

REACTIONS (4)
  - Oral pain [Unknown]
  - Angioedema [Unknown]
  - Skin disorder [Unknown]
  - Inflammation [Unknown]
